FAERS Safety Report 9355541 (Version 3)
Quarter: 2013Q3

REPORT INFORMATION
  Report Type: Spontaneous
  Country: JP (occurrence: JP)
  Receive Date: 20130619
  Receipt Date: 20130826
  Transmission Date: 20140515
  Serious: Yes (Hospitalization)
  Sender: FDA-Public Use
  Company Number: JP-SANOFI-AVENTIS-2013SA060041

PATIENT
  Age: 51 Year
  Sex: Male
  Weight: 58 kg

DRUGS (7)
  1. DELLEGRA [Suspect]
     Indication: RHINITIS ALLERGIC
     Route: 048
     Dates: start: 20130605, end: 20130607
  2. TALION [Concomitant]
     Route: 048
  3. PRANLUKAST [Concomitant]
     Route: 048
  4. PARIET [Concomitant]
     Route: 048
     Dates: end: 20130607
  5. HERBAL PREPARATION [Concomitant]
     Dosage: GRANULE
     Route: 048
  6. HERBAL PREPARATION [Concomitant]
     Route: 048
  7. ADVAIR DISKUS [Concomitant]
     Route: 055

REACTIONS (3)
  - Pancreatitis acute [Recovering/Resolving]
  - Abdominal pain [Recovering/Resolving]
  - Amylase increased [Recovering/Resolving]
